FAERS Safety Report 9390569 (Version 1)
Quarter: 2013Q3

REPORT INFORMATION
  Report Type: Spontaneous
  Country: FR (occurrence: FR)
  Receive Date: 20130709
  Receipt Date: 20130709
  Transmission Date: 20140515
  Serious: Yes (Hospitalization)
  Sender: FDA-Public Use
  Company Number: FR-JNJFOC-20130700409

PATIENT
  Age: 90 Year
  Sex: Female

DRUGS (18)
  1. XARELTO [Suspect]
     Indication: CEREBROVASCULAR ACCIDENT PROPHYLAXIS
     Route: 048
  2. XARELTO [Suspect]
     Indication: CEREBROVASCULAR ACCIDENT PROPHYLAXIS
     Route: 048
     Dates: start: 20130601
  3. XARELTO [Suspect]
     Indication: ATRIAL FIBRILLATION
     Route: 048
  4. XARELTO [Suspect]
     Indication: ATRIAL FIBRILLATION
     Route: 048
     Dates: start: 20130601
  5. ACEBUTOLOL [Concomitant]
     Route: 065
  6. BIPRETERAX [Concomitant]
     Route: 065
  7. TAHOR [Concomitant]
     Route: 065
  8. PENTASA [Concomitant]
     Route: 065
  9. LEVOTHYROX [Concomitant]
     Route: 065
  10. DAFALGAN [Concomitant]
     Route: 065
  11. SPASFON [Concomitant]
     Route: 065
  12. MONURIL [Concomitant]
     Route: 065
  13. HAMAMELIS [Concomitant]
     Route: 065
  14. TANAKAN [Concomitant]
     Route: 065
  15. PARAPSYLLIUM [Concomitant]
     Route: 065
  16. CACIT VITAMINE D3 [Concomitant]
     Route: 065
  17. LOCOID [Concomitant]
     Route: 065
  18. IXPRIM [Concomitant]
     Route: 065

REACTIONS (2)
  - Drug ineffective [Recovered/Resolved]
  - Ischaemic stroke [Recovered/Resolved]
